FAERS Safety Report 25000617 (Version 1)
Quarter: 2025Q1

REPORT INFORMATION
  Report Type: Spontaneous
  Country: US (occurrence: US)
  Receive Date: 20250222
  Receipt Date: 20250222
  Transmission Date: 20250408
  Serious: No
  Sender: SANOFI AVENTIS
  Company Number: US-SA-2025SA050561

PATIENT
  Age: 12 Year
  Sex: Male

DRUGS (3)
  1. DUPIXENT [Suspect]
     Active Substance: DUPILUMAB
     Indication: Eosinophilic oesophagitis
     Dosage: 300MG QOW
     Route: 058
     Dates: start: 20240916
  2. AZITHROMYCIN [Concomitant]
     Active Substance: AZITHROMYCIN
     Dates: start: 20250214
  3. AMOXICILLIN [Concomitant]
     Active Substance: AMOXICILLIN
     Dates: start: 20250214

REACTIONS (3)
  - Illness [Unknown]
  - Pyrexia [Not Recovered/Not Resolved]
  - Cough [Not Recovered/Not Resolved]

NARRATIVE: CASE EVENT DATE: 20250201
